FAERS Safety Report 8897580 (Version 1)
Quarter: 2012Q4

REPORT INFORMATION
  Report Type: 
  Country: US (occurrence: US)
  Receive Date: 20121108
  Receipt Date: 20121108
  Transmission Date: 20130627
  Serious: No
  Sender: FDA-Public Use
  Company Number: US-AMGEN-USASP2012028613

PATIENT
  Age: 60 Year
  Sex: Female

DRUGS (18)
  1. ENBREL [Suspect]
     Indication: PRODUCT USED FOR UNKNOWN INDICATION
     Dosage: 50 mg, qwk
     Route: 058
  2. METHOTREXATE [Concomitant]
     Dosage: 2.5 mg, UNK
  3. FOSAMAX [Concomitant]
     Dosage: 5 mg, UNK
  4. MEDROL                             /00049601/ [Concomitant]
     Dosage: 4 mg, UNK
  5. CELEBREX [Concomitant]
     Dosage: 50 mg, UNK
  6. ULTRAM [Concomitant]
     Dosage: 50 mg, UNK
  7. CLARINEX                           /01202601/ [Concomitant]
     Dosage: 5 mg, UNK
  8. TOPROL [Concomitant]
     Dosage: 100 mg, UNK
  9. HYDROCHLOROTH [Concomitant]
     Dosage: 12.5 mg, UNK
  10. AXID                               /00867001/ [Concomitant]
     Dosage: 150 mg, UNK
  11. ZESTRIL [Concomitant]
     Dosage: 5 mg, UNK
  12. SKELAXIN                           /00611501/ [Concomitant]
     Dosage: 800 mg, UNK
  13. FINACEA [Concomitant]
     Dosage: 15 %, UNK
  14. FISH OIL [Concomitant]
     Dosage: UNK
  15. LUNESTA [Concomitant]
     Dosage: 1 mg, UNK
  16. MULTIVITAMIN                       /00097801/ [Concomitant]
     Dosage: UNK
  17. CALCIUM D                          /00944201/ [Concomitant]
     Dosage: UNK
  18. TYLENOL /00020001/ [Concomitant]
     Dosage: 325 mg, UNK

REACTIONS (2)
  - Sinusitis [Unknown]
  - Upper respiratory tract infection [Unknown]
